FAERS Safety Report 20768769 (Version 13)
Quarter: 2022Q4

REPORT INFORMATION
  Report Type: Report from Study
  Country: JP (occurrence: None)
  Receive Date: 20220429
  Receipt Date: 20221025
  Transmission Date: 20230112
  Serious: Yes (Hospitalization)
  Sender: FDA-Public Use
  Company Number: JP-Eisai Medical Research-EC-2022-113743

PATIENT
  Age: 65 Year
  Sex: Male
  Weight: 62.5 kg

DRUGS (10)
  1. LENVATINIB [Suspect]
     Active Substance: LENVATINIB
     Indication: Hepatocellular carcinoma
     Route: 048
     Dates: start: 20220307, end: 20220402
  2. LENVATINIB [Suspect]
     Active Substance: LENVATINIB
     Route: 048
     Dates: start: 20220415, end: 20220422
  3. LENVATINIB [Suspect]
     Active Substance: LENVATINIB
     Route: 048
     Dates: start: 20220524, end: 20220613
  4. PEMBROLIZUMAB [Suspect]
     Active Substance: PEMBROLIZUMAB
     Indication: Hepatocellular carcinoma
     Dosage: QUAVONLIMAB (MK-1308) 25 MG PLUS PEMBROLIZUMAB (MK-3475) 400 MG
     Route: 041
     Dates: start: 20220307, end: 20220307
  5. QUAVONLIMAB [Suspect]
     Active Substance: QUAVONLIMAB
     Dosage: QUAVONLIMAB (MK-1308) 25 MG PLUS PEMBROLIZUMAB (MK-3475) 400 MG
     Route: 041
     Dates: start: 20220415
  6. ENTECAVIR [Concomitant]
     Active Substance: ENTECAVIR
     Dates: start: 20141105
  7. CILNIDIPINE [Concomitant]
     Active Substance: CILNIDIPINE
     Dates: start: 20220222
  8. BROTIZOLAM [Concomitant]
     Active Substance: BROTIZOLAM
     Dates: start: 20220306, end: 20220618
  9. POLYETHYLENE GLYCOL 3350\POTASSIUM CHLORIDE\SODIUM BICARBONATE\SODIUM [Concomitant]
     Active Substance: POLYETHYLENE GLYCOL 3350\POTASSIUM CHLORIDE\SODIUM BICARBONATE\SODIUM CHLORIDE
     Dates: start: 20220311, end: 20220506
  10. FELBINAC [Concomitant]
     Active Substance: FELBINAC
     Dates: start: 20220326

REACTIONS (1)
  - Malaise [Recovered/Resolved]

NARRATIVE: CASE EVENT DATE: 20220401
